FAERS Safety Report 13874349 (Version 1)
Quarter: 2017Q3

REPORT INFORMATION
  Report Type: Spontaneous
  Country: US (occurrence: US)
  Receive Date: 20170816
  Receipt Date: 20170816
  Transmission Date: 20171127
  Serious: No
  Sender: FDA-Public Use
  Company Number: US-ROCHE-1033690

PATIENT
  Sex: Female

DRUGS (1)
  1. LUCENTIS [Suspect]
     Active Substance: RANIBIZUMAB
     Indication: PRODUCT USED FOR UNKNOWN INDICATION
     Route: 065

REACTIONS (8)
  - Swelling [Unknown]
  - Visual impairment [Unknown]
  - Pain [Unknown]
  - Malaise [Unknown]
  - Eye pain [Unknown]
  - Headache [Unknown]
  - Feeling abnormal [Unknown]
  - Eye disorder [Unknown]
